FAERS Safety Report 13828861 (Version 1)
Quarter: 2017Q3

REPORT INFORMATION
  Report Type: Spontaneous
  Country: US (occurrence: US)
  Receive Date: 20170802
  Receipt Date: 20170802
  Transmission Date: 20171127
  Serious: Yes (Disabling)
  Sender: FDA-Public Use
  Company Number: None

PATIENT
  Sex: Male
  Weight: 90 kg

DRUGS (9)
  1. FISH OIL [Concomitant]
     Active Substance: FISH OIL
  2. FLEXERIL [Concomitant]
     Active Substance: CYCLOBENZAPRINE HYDROCHLORIDE
  3. IBUPROFEN. [Suspect]
     Active Substance: IBUPROFEN
     Indication: CARTILAGE INJURY
     Dates: start: 20000101, end: 20170715
  4. SEROQUEL [Concomitant]
     Active Substance: QUETIAPINE FUMARATE
  5. TYLENOL [Concomitant]
     Active Substance: ACETAMINOPHEN
  6. IBUPROFEN. [Concomitant]
     Active Substance: IBUPROFEN
  7. MILK THISTLE [Concomitant]
     Active Substance: MILK THISTLE
  8. IBUPROFEN. [Suspect]
     Active Substance: IBUPROFEN
     Indication: INTERVERTEBRAL DISC PROTRUSION
     Dates: start: 20000101, end: 20170715
  9. TRAMADOL. [Concomitant]
     Active Substance: TRAMADOL

REACTIONS (2)
  - Impaired healing [None]
  - Collagen disorder [None]
